FAERS Safety Report 7371877 (Version 6)
Quarter: 2013Q4

REPORT INFORMATION
  Report Type: Report from Study
  Country: JP (occurrence: JP)
  Receive Date: 20100430
  Receipt Date: 20131219
  Transmission Date: 20140711
  Serious: Yes (Life-Threatening)
  Sender: FDA-Public Use
  Company Number: JP-ROCHE-699531

PATIENT
  Age: 62 Year
  Sex: Male
  Weight: 78 kg

DRUGS (12)
  1. BEVACIZUMAB [Suspect]
     Indication: LUNG ADENOCARCINOMA METASTATIC
     Route: 041
     Dates: start: 20091112, end: 20091225
  2. BEVACIZUMAB [Suspect]
     Indication: NON-SMALL CELL LUNG CANCER
     Route: 041
     Dates: start: 20100118, end: 20100412
  3. CISPLATIN [Concomitant]
     Indication: LUNG ADENOCARCINOMA METASTATIC
     Route: 041
     Dates: start: 20091019, end: 20091225
  4. ALIMTA [Concomitant]
     Indication: LUNG ADENOCARCINOMA
     Route: 041
     Dates: start: 20091019, end: 20100412
  5. CYANOCOBALAMIN [Concomitant]
     Route: 030
  6. PANVITAN [Concomitant]
     Dosage: DRUG REPORTED AS PANVITAN(RETINOL_CALCIFEROL COMBINED DRUG)
     Route: 048
  7. PREDONINE [Concomitant]
     Route: 048
     Dates: start: 20100118, end: 20100121
  8. DEXART [Concomitant]
     Route: 041
     Dates: start: 20100118, end: 20100412
  9. ALLOZYM [Concomitant]
     Indication: HYPERURICAEMIA
     Route: 048
  10. TENORMIN [Concomitant]
     Indication: HYPERTENSION
     Route: 048
  11. AMLODIN [Concomitant]
     Indication: HYPERTENSION
     Route: 048
  12. LIPOVAS [Concomitant]
     Indication: HYPERLIPIDAEMIA
     Route: 048

REACTIONS (2)
  - Aortic dissection [Recovering/Resolving]
  - Hypertension [Recovered/Resolved]
